FAERS Safety Report 9373367 (Version 2)
Quarter: 2013Q3

REPORT INFORMATION
  Report Type: Spontaneous
  Country: FR (occurrence: FR)
  Receive Date: 20130627
  Receipt Date: 20130925
  Transmission Date: 20140515
  Serious: Yes (Life-Threatening, Hospitalization, Other)
  Sender: FDA-Public Use
  Company Number: FR-TEVA-415710ISR

PATIENT
  Age: 84 Year
  Sex: Male
  Weight: 95 kg

DRUGS (7)
  1. FUROSEMIDE [Suspect]
     Indication: CARDIAC FAILURE
     Route: 048
  2. COUMADINE [Concomitant]
     Indication: ATRIAL FIBRILLATION
     Dosage: 2.5 UNKNOWN DAILY;
     Route: 048
  3. DIFFU K [Concomitant]
     Dosage: 1 UNKNOWN DAILY;
     Route: 048
  4. TRIATEC 10 [Concomitant]
     Indication: HYPERTENSION
     Dosage: 1 UNKNOWN DAILY;
     Route: 048
  5. TRIATEC 10 [Concomitant]
     Indication: CARDIAC FAILURE
  6. DIAMICRON [Concomitant]
     Indication: TYPE 2 DIABETES MELLITUS
     Dosage: 1 UNKNOWN DAILY;
     Route: 048
  7. ZYLORIC [Concomitant]
     Indication: HYPERURICAEMIA
     Dosage: 1 UNKNOWN DAILY;
     Route: 048

REACTIONS (3)
  - Somnolence [Recovered/Resolved]
  - Oedema [Recovered/Resolved]
  - Drug ineffective [Unknown]
